FAERS Safety Report 12173641 (Version 1)
Quarter: 2016Q1

REPORT INFORMATION
  Report Type: Spontaneous
  Country: US (occurrence: None)
  Receive Date: 20160311
  Receipt Date: 20160311
  Transmission Date: 20160526
  Serious: No
  Sender: FDA-Public Use
  Company Number: None

PATIENT
  Sex: Female

DRUGS (1)
  1. HUMALOG [Suspect]
     Active Substance: INSULIN LISPRO

REACTIONS (6)
  - Off label use [None]
  - Drug ineffective [None]
  - Blood glucose increased [None]
  - Memory impairment [None]
  - Drug dose omission [None]
  - Glycosylated haemoglobin increased [None]
